FAERS Safety Report 10150969 (Version 1)
Quarter: 2014Q2

REPORT INFORMATION
  Report Type: Spontaneous
  Country: US (occurrence: US)
  Receive Date: 20140502
  Receipt Date: 20140502
  Transmission Date: 20141212
  Serious: Yes (Other)
  Sender: FDA-Public Use
  Company Number: US-FRI-1000066932

PATIENT
  Age: 74 Year
  Sex: Female

DRUGS (8)
  1. LINZESS [Suspect]
     Indication: IRRITABLE BOWEL SYNDROME
     Dosage: 290 MCG
     Dates: start: 201306, end: 2013
  2. LINZESS [Suspect]
     Indication: IRRITABLE BOWEL SYNDROME
     Dosage: 145 MCG
     Dates: start: 2013, end: 201403
  3. LINZESS [Suspect]
     Dosage: 290 MCG
     Dates: start: 201403
  4. PROPOFOL [Suspect]
     Indication: ANAESTHESIA
     Dates: start: 20140422, end: 20140422
  5. CRESTOR [Concomitant]
     Dosage: 5 MG THREE TIMES A WEEK
  6. CLONAZEPAM [Concomitant]
     Indication: ANXIETY
     Dosage: AS NEEDED
  7. PRILOSEC [Concomitant]
     Indication: GASTROOESOPHAGEAL REFLUX DISEASE
  8. VITAMIN D [Concomitant]

REACTIONS (9)
  - Ulcer [Unknown]
  - Blood chloride decreased [Unknown]
  - Tremor [Recovered/Resolved]
  - Pruritus [Recovered/Resolved]
  - Blood pressure increased [Recovered/Resolved]
  - Paranasal sinus discomfort [Recovered/Resolved]
  - Diarrhoea [Recovered/Resolved]
  - Abdominal pain [Recovered/Resolved]
  - Drug ineffective [Recovered/Resolved]
